FAERS Safety Report 4785936-4 (Version None)
Quarter: 2005Q4

REPORT INFORMATION
  Report Type: 
  Country: None (occurrence: None)
  Receive Date: 20051003
  Receipt Date: 20050926
  Transmission Date: 20060501
  Serious: Yes (Hospitalization)
  Sender: FDA-Public Use
  Company Number: US-SANOFI-SYNTHELABO-A03200503054

PATIENT
  Sex: Female
  Weight: 62.1 kg

DRUGS (5)
  1. ELOXATIN [Suspect]
     Indication: COLON CANCER
     Route: 042
     Dates: start: 20050906, end: 20050906
  2. FLUOROURACIL [Concomitant]
     Route: 042
  3. LEUCOVORIN [Concomitant]
     Route: 042
  4. BENADRYL [Concomitant]
     Route: 042
  5. DEXAMETHASONE [Concomitant]
     Route: 042

REACTIONS (6)
  - CONVULSION [None]
  - DISORIENTATION [None]
  - DISSEMINATED INTRAVASCULAR COAGULATION [None]
  - FLUSHING [None]
  - NERVOUSNESS [None]
  - RENAL FAILURE [None]
